FAERS Safety Report 21687683 (Version 1)
Quarter: 2022Q4

REPORT INFORMATION
  Report Type: Report from Study
  Country: KR (occurrence: KR)
  Receive Date: 20221206
  Receipt Date: 20221206
  Transmission Date: 20230113
  Serious: Yes (Hospitalization)
  Sender: FDA-Public Use
  Company Number: KR-BAYER-2022P024881

PATIENT
  Age: 66 Year
  Sex: Female
  Weight: 50 kg

DRUGS (13)
  1. RIVAROXABAN [Suspect]
     Active Substance: RIVAROXABAN
     Indication: Coronary artery disease
     Dosage: 2.5 MG, BID
     Route: 048
     Dates: start: 20210304, end: 20210718
  2. RIVAROXABAN [Suspect]
     Active Substance: RIVAROXABAN
     Indication: Peripheral arterial occlusive disease
     Route: 048
  3. RIVAROXABAN [Suspect]
     Active Substance: RIVAROXABAN
     Indication: Cardiovascular event prophylaxis
     Route: 048
  4. ASPIRIN [Suspect]
     Active Substance: ASPIRIN
     Indication: Coronary artery disease
     Dosage: 100 MG, QD
     Route: 048
     Dates: start: 20200820
  5. ASPIRIN [Suspect]
     Active Substance: ASPIRIN
     Indication: Peripheral arterial occlusive disease
  6. ASPIRIN [Suspect]
     Active Substance: ASPIRIN
     Indication: Cardiovascular event prophylaxis
  7. CLOPIDOGREL [Concomitant]
     Active Substance: CLOPIDOGREL BISULFATE
     Dosage: 75 MG, QD
     Dates: start: 20200820, end: 20210303
  8. CLOPIDOGREL [Concomitant]
     Active Substance: CLOPIDOGREL BISULFATE
     Dosage: 75 MG, QD
     Dates: start: 20210727
  9. CILOSTAZOL [Concomitant]
     Active Substance: CILOSTAZOL
     Dosage: 200 MG, QD
     Dates: start: 20200820, end: 20210303
  10. ATORVASTATIN [Concomitant]
     Active Substance: ATORVASTATIN
     Dosage: 20 MG, QD
     Dates: start: 20210304
  11. GINKGO BILOBA LEAF EXTRACT [Concomitant]
     Active Substance: GINKGO BILOBA LEAF EXTRACT
     Dosage: 1 DF, BID
     Dates: start: 20200727
  12. KALLIDINOGENASE [Concomitant]
     Active Substance: KALLIDINOGENASE
     Dosage: 50 IU, BID
     Dates: start: 20170814
  13. TEGOPRAZAN [Concomitant]
     Active Substance: TEGOPRAZAN
     Dosage: 50 MG, QD
     Dates: start: 20200820

REACTIONS (1)
  - Angioplasty [Recovered/Resolved]

NARRATIVE: CASE EVENT DATE: 20210718
